FAERS Safety Report 11822598 (Version 1)
Quarter: 2015Q4

REPORT INFORMATION
  Report Type: Spontaneous
  Country: US (occurrence: US)
  Receive Date: 20151210
  Receipt Date: 20151210
  Transmission Date: 20160305
  Serious: No
  Sender: FDA-Public Use
  Company Number: US-JNJFOC-20150514440

PATIENT
  Sex: Male

DRUGS (9)
  1. IMBRUVICA [Suspect]
     Active Substance: IBRUTINIB
     Indication: WALDENSTROM^S MACROGLOBULINAEMIA
     Route: 048
     Dates: start: 2015
  2. METFORMIN HCL [Concomitant]
     Active Substance: METFORMIN HYDROCHLORIDE
  3. GLYBURIDE. [Concomitant]
     Active Substance: GLYBURIDE
  4. BACTRIM DS [Concomitant]
     Active Substance: SULFAMETHOXAZOLE\TRIMETHOPRIM
  5. ACYCLOVIR. [Concomitant]
     Active Substance: ACYCLOVIR
  6. HYDROCHLOROTHIAZIDE. [Concomitant]
     Active Substance: HYDROCHLOROTHIAZIDE
  7. OXYCODONE [Concomitant]
     Active Substance: OXYCODONE
  8. IMBRUVICA [Suspect]
     Active Substance: IBRUTINIB
     Indication: WALDENSTROM^S MACROGLOBULINAEMIA
     Route: 048
     Dates: start: 20150428, end: 2015
  9. JANUVIA [Concomitant]
     Active Substance: SITAGLIPTIN PHOSPHATE

REACTIONS (3)
  - Diarrhoea [Recovered/Resolved]
  - Blood glucose decreased [Unknown]
  - Fatigue [Not Recovered/Not Resolved]

NARRATIVE: CASE EVENT DATE: 2015
